FAERS Safety Report 8248289-5 (Version None)
Quarter: 2012Q1

REPORT INFORMATION
  Report Type: 
  Country: None (occurrence: None)
  Receive Date: 20120330
  Receipt Date: 20120321
  Transmission Date: 20120608
  Serious: Yes (Hospitalization)
  Sender: FDA-Public Use
  Company Number: AU-ASTRAZENECA-2012SE19194

PATIENT
  Age: 68 Year
  Sex: Female

DRUGS (1)
  1. SYMBICORT [Suspect]
     Dosage: 200/6 UNKNOWN
     Route: 055

REACTIONS (2)
  - COUGH [None]
  - PNEUMONIA [None]
